FAERS Safety Report 26126092 (Version 2)
Quarter: 2025Q4

REPORT INFORMATION
  Report Type: Spontaneous
  Country: US (occurrence: US)
  Receive Date: 20251205
  Receipt Date: 20251212
  Transmission Date: 20260118
  Serious: Yes (Hospitalization, Other)
  Sender: PFIZER
  Company Number: US-MLMSERVICE-20251126-PI722519-00162-4

PATIENT

DRUGS (8)
  1. FUROSEMIDE [Suspect]
     Active Substance: FUROSEMIDE
     Dosage: FREQ:2 {TOTAL};DAYS OF LIFE (DOL) 147: TWO ONE-TIME DOSES OF 5 MG [APPROXIMATELY 0.9 MG/KG/DOSE]
     Route: 042
  2. FUROSEMIDE [Suspect]
     Active Substance: FUROSEMIDE
     Dosage: DAYS OF LIFE (DOL) 147: 10 MG [APPROXIMATELY 1.8 MG/KG/DOSE].
     Route: 042
  3. FUROSEMIDE [Suspect]
     Active Substance: FUROSEMIDE
     Dosage: FREQ:12 H;DAYS OF LIFE (DOL) 147: INITIATION OF SCHEDULED 1 MG/KG/DOSE Q12H)
     Route: 042
  4. FUROSEMIDE [Suspect]
     Active Substance: FUROSEMIDE
     Dosage: DAYS OF LIFE (DOL)148: INCREASED FREQUENCY TO Q6HR.
     Route: 042
  5. CEFAZOLIN [Suspect]
     Active Substance: CEFAZOLIN
     Indication: Pyrexia
     Dosage: TWO DOSES
  6. CEFAZOLIN [Suspect]
     Active Substance: CEFAZOLIN
     Indication: Antibiotic therapy
  7. CEFEPIME [Suspect]
     Active Substance: CEFEPIME HYDROCHLORIDE
     Indication: Pyrexia
     Dosage: TWO DOSES
  8. CEFEPIME [Suspect]
     Active Substance: CEFEPIME HYDROCHLORIDE
     Indication: Antibiotic therapy

REACTIONS (1)
  - Neutropenia [Recovering/Resolving]
